FAERS Safety Report 5696018-1 (Version None)
Quarter: 2008Q2

REPORT INFORMATION
  Report Type: 
  Country: None (occurrence: None)
  Receive Date: 20080407
  Receipt Date: 20080401
  Transmission Date: 20081010
  Serious: Yes (Life-Threatening)
  Sender: FDA-Public Use
  Company Number: JP-MERCK-0804USA00944

PATIENT
  Age: 70 Year
  Sex: Male

DRUGS (6)
  1. HYZAAR [Suspect]
     Route: 048
     Dates: start: 20080318, end: 20080331
  2. AMIODARONE HYDROCHLORIDE [Suspect]
     Route: 048
     Dates: start: 20080318, end: 20080331
  3. EPLERENONE [Suspect]
     Route: 048
     Dates: start: 20080310, end: 20080331
  4. PLETAL [Suspect]
     Route: 048
     Dates: start: 20080318, end: 20080331
  5. ALOSITOL [Suspect]
     Route: 048
     Dates: start: 20080318, end: 20080331
  6. LASIX [Suspect]
     Route: 048
     Dates: start: 20080318, end: 20080331

REACTIONS (1)
  - HEPATITIS FULMINANT [None]
